FAERS Safety Report 4695545-3 (Version None)
Quarter: 2005Q2

REPORT INFORMATION
  Report Type: 
  Country: None (occurrence: None)
  Receive Date: 20050523
  Receipt Date: 20050512
  Transmission Date: 20051028
  Serious: Yes (Hospitalization)
  Sender: FDA-Public Use
  Company Number: 2005AP02830

PATIENT
  Age: 88 Year
  Sex: Male

DRUGS (6)
  1. OMEPRAL [Suspect]
     Indication: PROPHYLAXIS AGAINST GASTROINTESTINAL ULCER
     Route: 048
  2. ALOSITOL [Suspect]
     Route: 048
  3. KREMEZIN [Concomitant]
     Route: 048
  4. URINORM [Concomitant]
     Route: 048
  5. COMELIAN [Concomitant]
     Route: 048
  6. DIART [Concomitant]
     Route: 048

REACTIONS (1)
  - INTERSTITIAL LUNG DISEASE [None]
